FAERS Safety Report 6732131-5 (Version None)
Quarter: 2010Q2

REPORT INFORMATION
  Report Type: 
  Country: None (occurrence: None)
  Receive Date: 20100519
  Receipt Date: 20100513
  Transmission Date: 20101027
  Serious: Yes (Hospitalization)
  Sender: FDA-Public Use
  Company Number: US-RB-026055-09

PATIENT
  Age: 52 Year
  Sex: Female

DRUGS (1)
  1. SUBOXONE [Suspect]
     Indication: DRUG USE FOR UNKNOWN INDICATION
     Dosage: DOSING DETAILS UNKNOWN
     Route: 065

REACTIONS (5)
  - APPENDICITIS [None]
  - DRUG WITHDRAWAL SYNDROME [None]
  - HERNIA [None]
  - MUSCLE STRAIN [None]
  - PNEUMONIA [None]
